FAERS Safety Report 4309837-0 (Version None)
Quarter: 2004Q1

REPORT INFORMATION
  Report Type: 
  Country: None (occurrence: None)
  Receive Date: 20040227
  Receipt Date: 20031008
  Transmission Date: 20041129
  Serious: Yes (Other)
  Sender: FDA-Public Use
  Company Number: 202688

PATIENT
  Sex: Female
  Weight: 100 kg

DRUGS (6)
  1. XOLAIR [Suspect]
     Indication: ASTHMA
     Dosage: 300 MG, Q4W; SUBCUTANEOUS
     Route: 058
     Dates: start: 20030930
  2. PREDNISONE [Concomitant]
  3. CYCLOSPORINE [Concomitant]
  4. ZYRTEC [Concomitant]
  5. PULMICORT [Concomitant]
  6. SINGULAIR [Concomitant]

REACTIONS (3)
  - HYPERSENSITIVITY [None]
  - PRURITUS [None]
  - RASH ERYTHEMATOUS [None]
